FAERS Safety Report 5223432-0 (Version None)
Quarter: 2007Q1

REPORT INFORMATION
  Report Type: 
  Country: None (occurrence: None)
  Receive Date: 20070125
  Receipt Date: 20070110
  Transmission Date: 20070707
  Serious: Yes (Death)
  Sender: FDA-Public Use
  Company Number: 8021115

PATIENT
  Age: 77 Year
  Sex: Female

DRUGS (2)
  1. KEPPRA [Suspect]
     Indication: CONVULSION
     Dosage: 500 MG 2/D IV
     Route: 042
     Dates: start: 20060801, end: 20060901
  2. ERGENYL CHRONO [Suspect]
     Indication: CONVULSION
     Dosage: 250 MG 2/D
     Dates: end: 20060801

REACTIONS (1)
  - GENERAL PHYSICAL HEALTH DETERIORATION [None]
